FAERS Safety Report 7730276-4 (Version None)
Quarter: 2011Q3

REPORT INFORMATION
  Report Type: 
  Country: None (occurrence: None)
  Receive Date: 20110906
  Receipt Date: 20110824
  Transmission Date: 20111222
  Serious: Yes (Other)
  Sender: FDA-Public Use
  Company Number: US-ASTRAZENECA-2011SE52365

PATIENT
  Age: 37 Year
  Sex: Female

DRUGS (5)
  1. BUSCOPAN COMPOSTO [Concomitant]
     Dosage: 1 AMPOULE QID
     Dates: start: 20110805, end: 20110811
  2. METOCLOPRAMIDE HYDROCHLORIDE [Concomitant]
     Dates: start: 20110805, end: 20110811
  3. ROCEPHIN [Concomitant]
     Dates: start: 20110807, end: 20110811
  4. NEXIUM [Suspect]
     Route: 042
     Dates: start: 20110805
  5. ZOFRAN [Concomitant]
     Dates: start: 20110805, end: 20110805

REACTIONS (3)
  - HEADACHE [None]
  - NAUSEA [None]
  - NASAL DRYNESS [None]
